FAERS Safety Report 22055501 (Version 1)
Quarter: 2023Q1

REPORT INFORMATION
  Report Type: Spontaneous
  Country: CH (occurrence: CH)
  Receive Date: 20230302
  Receipt Date: 20230302
  Transmission Date: 20230417
  Serious: Yes (Death, Other)
  Sender: FDA-Public Use
  Company Number: CH-TEVA-2023-CH-2860274

PATIENT

DRUGS (4)
  1. LEUCOVORIN [Suspect]
     Active Substance: LEUCOVORIN
     Indication: Gastric cancer stage IV
     Route: 065
  2. FLUOROURACIL [Suspect]
     Active Substance: FLUOROURACIL
     Indication: Gastric cancer stage IV
     Route: 065
  3. OXALIPLATIN [Suspect]
     Active Substance: OXALIPLATIN
     Indication: Gastric cancer stage IV
     Route: 065
  4. ERBITUX [Suspect]
     Active Substance: CETUXIMAB
     Indication: Gastric cancer stage IV
     Route: 065

REACTIONS (1)
  - Metastases to meninges [Fatal]
